FAERS Safety Report 10025902 (Version 1)
Quarter: 2014Q1

REPORT INFORMATION
  Report Type: Spontaneous
  Country: US (occurrence: US)
  Receive Date: 20140320
  Receipt Date: 20140320
  Transmission Date: 20141002
  Serious: Yes (Hospitalization)
  Sender: FDA-Public Use
  Company Number: US-TAKEDA-2014TUS001915

PATIENT
  Sex: 0

DRUGS (3)
  1. NESINA [Suspect]
     Indication: TYPE 2 DIABETES MELLITUS
     Dosage: 25 MG, QD
     Route: 048
     Dates: start: 201403
  2. WARFARIN [Concomitant]
     Dosage: UNK
  3. DIGOXIN [Concomitant]
     Dosage: UNK

REACTIONS (3)
  - International normalised ratio increased [Recovered/Resolved]
  - Prothrombin time prolonged [Recovered/Resolved]
  - Thrombosis [Recovered/Resolved]
